FAERS Safety Report 8808797 (Version 1)
Quarter: 2012Q4

REPORT INFORMATION
  Report Type: 
  Country: MX (occurrence: MX)
  Receive Date: 20120926
  Receipt Date: 20120926
  Transmission Date: 20130627
  Serious: Yes (Death)
  Sender: FDA-Public Use
  Company Number: MX-BRISTOL-MYERS SQUIBB COMPANY-16982340

PATIENT
  Sex: Male

DRUGS (1)
  1. IPILIMUMAB [Suspect]

REACTIONS (1)
  - Device related sepsis [Fatal]
